FAERS Safety Report 16897121 (Version 1)
Quarter: 2019Q4

REPORT INFORMATION
  Report Type: Spontaneous
  Country: JP (occurrence: JP)
  Receive Date: 20191009
  Receipt Date: 20191009
  Transmission Date: 20200122
  Serious: Yes (Other)
  Sender: FDA-Public Use
  Company Number: JP-TEVA-2019-JP-1118442

PATIENT
  Age: 68 Year
  Sex: Female

DRUGS (4)
  1. DOCETAXEL. [Suspect]
     Active Substance: DOCETAXEL
     Dosage: AS A PART OF CONCURRENT CHEMORADIOTHERAPY; 20 MG/BODY ON DAY TWO, EVERY WEEK FOR THREE CYCLES
     Route: 065
  2. DOCETAXEL. [Suspect]
     Active Substance: DOCETAXEL
     Indication: PAPILLARY SEROUS ENDOMETRIAL CARCINOMA
     Dosage: FOUR CYCLES WITH CISPLATIN
     Route: 065
  3. CISPLATIN. [Concomitant]
     Active Substance: CISPLATIN
     Indication: PAPILLARY SEROUS ENDOMETRIAL CARCINOMA
     Dosage: FOUR CYCLES WITH DOCETAXEL
     Route: 065
  4. NEDAPLATIN [Suspect]
     Active Substance: NEDAPLATIN
     Indication: PAPILLARY SEROUS ENDOMETRIAL CARCINOMA
     Dosage: AS A PART OF CONCURRENT CHEMORADIOTHERAPY; 20 MG/BODY ON DAY TWO, EVERY WEEK FOR THREE CYCLES
     Route: 065

REACTIONS (2)
  - Nausea [Unknown]
  - Gastrointestinal fistula [Unknown]
